FAERS Safety Report 6854594-7 (Version None)
Quarter: 2010Q3

REPORT INFORMATION
  Report Type: 
  Country: None (occurrence: None)
  Receive Date: 20100717
  Receipt Date: 20080218
  Transmission Date: 20110219
  Serious: No
  Sender: FDA-Public Use
  Company Number: US-PFIZER INC-2007102551

PATIENT
  Sex: Female
  Weight: 76.2 kg

DRUGS (4)
  1. CHANTIX [Suspect]
     Indication: SMOKING CESSATION THERAPY
     Dates: start: 20071102
  2. METHADONE HCL [Interacting]
     Indication: DRUG REHABILITATION
     Dates: start: 20071130
  3. CLONAZEPAM [Concomitant]
     Dates: start: 20070613
  4. ADDERALL 10 [Concomitant]
     Dates: start: 20070905

REACTIONS (2)
  - DRUG INTERACTION [None]
  - WITHDRAWAL SYNDROME [None]
